FAERS Safety Report 14794639 (Version 2)
Quarter: 2018Q2

REPORT INFORMATION
  Report Type: Spontaneous
  Country: US (occurrence: US)
  Receive Date: 20180423
  Receipt Date: 20180426
  Transmission Date: 20180711
  Serious: Yes (Death, Life-Threatening)
  Sender: FDA-Public Use
  Company Number: US-PFIZER INC-2018165319

PATIENT
  Age: 39 Year
  Sex: Male

DRUGS (9)
  1. LEUCOVORINE [Suspect]
     Active Substance: LEUCOVORIN
     Indication: DERMATOMYOSITIS
     Dosage: 5 MG, WEEKLY (ON ADMISSION)
  2. RITUXIMAB. [Suspect]
     Active Substance: RITUXIMAB
     Indication: DERMATOMYOSITIS
     Dosage: UNK
  3. PREDNISONE. [Suspect]
     Active Substance: PREDNISONE
     Indication: DERMATOMYOSITIS
     Dosage: 45 MG, DAILY (ON ADMISSION)
  4. METHOTREXATE SODIUM. [Suspect]
     Active Substance: METHOTREXATE SODIUM
     Indication: DERMATOMYOSITIS
     Dosage: UNK, WEEKLY
  5. METHOTREXATE SODIUM. [Suspect]
     Active Substance: METHOTREXATE SODIUM
     Dosage: 2.5 MG, WEEKLY (ON ADMISSION)
  6. METHYLPREDNISOLONE SODIUM SUCCINATE. [Suspect]
     Active Substance: METHYLPREDNISOLONE SODIUM SUCCINATE
     Dosage: UNK
  7. DAPSONE. [Suspect]
     Active Substance: DAPSONE
     Indication: DERMATOMYOSITIS
     Dosage: 100 MG, 2X/DAY
  8. IMMUNOGLOBULIN HUMAN NORMAL [Suspect]
     Active Substance: HUMAN IMMUNOGLOBULIN G
     Indication: DERMATOMYOSITIS
     Dosage: UNK
     Route: 042
  9. HYDROCORTISONE. [Concomitant]
     Active Substance: HYDROCORTISONE
     Indication: SEPSIS
     Dosage: UNK, 3X/DAY (EVERY 8 HOURS)
     Route: 042

REACTIONS (1)
  - Strongyloidiasis [Fatal]
